FAERS Safety Report 7232972-4 (Version None)
Quarter: 2011Q1

REPORT INFORMATION
  Report Type: 
  Country: None (occurrence: None)
  Receive Date: 20110119
  Receipt Date: 20110112
  Transmission Date: 20110831
  Serious: Yes (Hospitalization, Other)
  Sender: FDA-Public Use
  Company Number: CH-BAXTER-2010BH025469

PATIENT
  Age: 43 Year
  Sex: Female

DRUGS (12)
  1. PROCTO-GLYVENOL [Concomitant]
     Indication: PRODUCT USED FOR UNKNOWN INDICATION
     Route: 065
  2. PIPERACILLIN AND TAZOBACTAM [Concomitant]
     Indication: PRODUCT USED FOR UNKNOWN INDICATION
     Route: 065
  3. WELLVONE [Concomitant]
     Indication: PRODUCT USED FOR UNKNOWN INDICATION
     Route: 065
  4. TRANSIPEG                               /SCH/ [Concomitant]
     Indication: PRODUCT USED FOR UNKNOWN INDICATION
     Route: 065
  5. PANTOZOL [Concomitant]
     Indication: PRODUCT USED FOR UNKNOWN INDICATION
     Route: 065
  6. CYCLOPHOSPHAMIDE [Suspect]
     Indication: HODGKIN'S DISEASE
     Route: 051
     Dates: start: 20081101, end: 20090301
  7. BLEOMYCIN GENERIC [Suspect]
     Indication: HODGKIN'S DISEASE
     Route: 051
     Dates: start: 20081101, end: 20090301
  8. ETOPOSIDE [Suspect]
     Indication: HODGKIN'S DISEASE
     Route: 051
     Dates: start: 20081101, end: 20090301
  9. DIFLUCAN [Concomitant]
     Indication: PRODUCT USED FOR UNKNOWN INDICATION
     Route: 065
  10. DOXORUBICIN GENERIC [Suspect]
     Indication: HODGKIN'S DISEASE
     Route: 051
     Dates: start: 20081101, end: 20090301
  11. VINCRISTINE SULFATE [Suspect]
     Indication: HODGKIN'S DISEASE
     Route: 051
     Dates: start: 20081101, end: 20090301
  12. METHYLPREDNISOLONE ACETATE [Suspect]
     Indication: HODGKIN'S DISEASE
     Route: 048
     Dates: start: 20081101, end: 20090301

REACTIONS (10)
  - ARTHRALGIA [None]
  - PANCYTOPENIA [None]
  - VOMITING [None]
  - SEPSIS [None]
  - PYREXIA [None]
  - ABSCESS [None]
  - BONE DENSITY DECREASED [None]
  - AGRANULOCYTOSIS [None]
  - MYALGIA [None]
  - AMENORRHOEA [None]
